FAERS Safety Report 26081936 (Version 2)
Quarter: 2025Q4

REPORT INFORMATION
  Report Type: Spontaneous
  Country: EU (occurrence: EU)
  Receive Date: 20251124
  Receipt Date: 20251201
  Transmission Date: 20260117
  Serious: Yes (Hospitalization, Other)
  Sender: TAKEDA
  Company Number: EU-ZENTIVA-2025-ZT-051336

PATIENT
  Age: 71 Year
  Sex: Male

DRUGS (15)
  1. LANSOPRAZOLE [Interacting]
     Active Substance: LANSOPRAZOLE
     Indication: Product used for unknown indication
     Dosage: UNK
  2. ASPIRIN [Interacting]
     Active Substance: ASPIRIN
     Indication: Product used for unknown indication
     Dosage: UNK
  3. PREDNISONE [Interacting]
     Active Substance: PREDNISONE
     Indication: Chemotherapy toxicity attenuation
     Dosage: UNK
  4. PREDNISONE [Interacting]
     Active Substance: PREDNISONE
     Indication: Antiinflammatory therapy
  5. PEMETREXED [Interacting]
     Active Substance: PEMETREXED
     Indication: Non-small cell lung cancer metastatic
     Dosage: UNK
  6. PEMETREXED [Interacting]
     Active Substance: PEMETREXED
     Dosage: UNK UNK, Q3WEEKS
     Dates: start: 20240522, end: 20240710
  7. BISOPROLOL [Interacting]
     Active Substance: BISOPROLOL
     Indication: Product used for unknown indication
     Dosage: UNK
  8. AMLODIPINE\PERINDOPRIL [Interacting]
     Active Substance: AMLODIPINE\PERINDOPRIL
     Indication: Product used for unknown indication
     Dosage: UNK
  9. ROSUVASTATIN [Interacting]
     Active Substance: ROSUVASTATIN
     Indication: Product used for unknown indication
     Dosage: UNK
  10. TADALAFIL [Interacting]
     Active Substance: TADALAFIL
     Indication: Product used for unknown indication
     Dosage: UNK
  11. PEMBROLIZUMAB [Interacting]
     Active Substance: PEMBROLIZUMAB
     Indication: Non-small cell lung cancer metastatic
     Dosage: UNK
  12. PEMBROLIZUMAB [Interacting]
     Active Substance: PEMBROLIZUMAB
     Dosage: UNK UNK, Q3WEEKS
     Dates: start: 20240522
  13. CARBOPLATIN [Interacting]
     Active Substance: CARBOPLATIN
     Indication: Non-small cell lung cancer metastatic
     Dosage: UNK
  14. VITAMIN B12 [Interacting]
     Active Substance: CYANOCOBALAMIN
     Indication: Chemotherapy toxicity attenuation
     Dosage: UNK
  15. LEUCOVORIN [Interacting]
     Active Substance: LEUCOVORIN\LEUCOVORIN CALCIUM
     Indication: Chemotherapy toxicity attenuation
     Dosage: UNK

REACTIONS (13)
  - Pseudocellulitis [Recovered/Resolved]
  - Drug interaction [Unknown]
  - Erysipelas [Recovered/Resolved]
  - Oedema [Recovered/Resolved]
  - Pyrexia [Recovered/Resolved]
  - Cardiac failure [Recovered/Resolved]
  - Cellulitis [Recovered/Resolved]
  - Oedema peripheral [Recovered/Resolved]
  - Erythema [Recovered/Resolved]
  - Pain [Recovered/Resolved]
  - C-reactive protein increased [Recovered/Resolved]
  - Tissue infiltration [Recovered/Resolved]
  - Skin fibrosis [Recovered/Resolved]

NARRATIVE: CASE EVENT DATE: 20240530
